FAERS Safety Report 8312151 (Version 3)
Quarter: 2012Q4

REPORT INFORMATION
  Report Type: 
  Country: BR (occurrence: BR)
  Receive Date: 20111227
  Receipt Date: 20121023
  Transmission Date: 20130627
  Serious: Yes (Hospitalization, Other)
  Sender: FDA-Public Use
  Company Number: BR-ROCHE-1022137

PATIENT
  Sex: Female

DRUGS (3)
  1. XOLAIR [Suspect]
     Indication: ASTHMA
     Route: 065
     Dates: start: 201102
  2. MIFLONIDE [Suspect]
     Indication: ASTHMA
     Route: 065
     Dates: start: 201102
  3. SINGULAIR [Concomitant]
     Indication: PRODUCT USED FOR UNKNOWN INDICATION

REACTIONS (9)
  - Asthma [Recovering/Resolving]
  - Headache [Recovered/Resolved]
  - Migraine [Recovered/Resolved]
  - Toothache [Recovering/Resolving]
  - Respiratory tract infection [Unknown]
  - Sinusitis [Recovering/Resolving]
  - Pain in extremity [Recovering/Resolving]
  - Pneumonia [Recovering/Resolving]
  - Influenza [Recovered/Resolved]
